FAERS Safety Report 4451200-6 (Version None)
Quarter: 2004Q3

REPORT INFORMATION
  Report Type: 
  Country: None (occurrence: None)
  Receive Date: 20040915
  Receipt Date: 20040915
  Transmission Date: 20050211
  Serious: Yes (Hospitalization, Other)
  Sender: FDA-Public Use
  Company Number: None

PATIENT
  Age: 68 Year
  Sex: Male

DRUGS (3)
  1. VINBLASTINE 3 MG/M2 [Suspect]
     Indication: BLADDER CANCER
     Dosage: 3MG/M2
     Dates: start: 20040527
  2. CISPLATIN [Suspect]
     Dosage: 70MG/M2
     Dates: start: 20040527
  3. ADRIAMYCIN PFS [Suspect]
     Dosage: 30MG/M2
     Dates: start: 20040527

REACTIONS (5)
  - DEEP VEIN THROMBOSIS [None]
  - DEHYDRATION [None]
  - FATIGUE [None]
  - NEUTROPENIA [None]
  - TREATMENT NONCOMPLIANCE [None]
